FAERS Safety Report 13059686 (Version 1)
Quarter: 2016Q4

REPORT INFORMATION
  Report Type: Spontaneous
  Country: US (occurrence: US)
  Receive Date: 20161223
  Receipt Date: 20161223
  Transmission Date: 20170207
  Serious: Yes (Other)
  Sender: FDA-Public Use
  Company Number: US-PRESTIGE BRANDS -1061246

PATIENT
  Age: 12 Year
  Sex: Female

DRUGS (1)
  1. NIX [Suspect]
     Active Substance: PERMETHRIN
     Indication: LICE INFESTATION
     Route: 061
     Dates: start: 20161130, end: 20161130

REACTIONS (2)
  - Seizure [Not Recovered/Not Resolved]
  - Balance disorder [Not Recovered/Not Resolved]

NARRATIVE: CASE EVENT DATE: 20161201
